FAERS Safety Report 7248228-X (Version None)
Quarter: 2011Q1

REPORT INFORMATION
  Report Type: 
  Country: None (occurrence: None)
  Receive Date: 20110127
  Receipt Date: 20101206
  Transmission Date: 20110831
  Serious: Yes (Hospitalization)
  Sender: FDA-Public Use
  Company Number: US-BAYER-201037905NA

PATIENT
  Sex: Female
  Weight: 66 kg

DRUGS (3)
  1. YASMIN [Suspect]
     Indication: CONTRACEPTION
     Route: 048
     Dates: start: 20051201, end: 20090101
  2. YASMIN [Suspect]
     Indication: AMENORRHOEA
  3. YAZ [Suspect]
     Route: 048
     Dates: start: 20051201, end: 20090115

REACTIONS (4)
  - ABDOMINAL PAIN UPPER [None]
  - CHOLECYSTITIS [None]
  - CHOLELITHIASIS [None]
  - GALLBLADDER DISORDER [None]
